FAERS Safety Report 17082062 (Version 6)
Quarter: 2021Q2

REPORT INFORMATION
  Report Type: Spontaneous
  Country: JP (occurrence: JP)
  Receive Date: 20191127
  Receipt Date: 20210615
  Transmission Date: 20210716
  Serious: Yes (Other)
  Sender: FDA-Public Use
  Company Number: JP-JNJFOC-20191124421

PATIENT
  Age: 9 Decade
  Sex: Male

DRUGS (1)
  1. ERLEADA [Suspect]
     Active Substance: APALUTAMIDE
     Indication: PROSTATE CANCER METASTATIC
     Route: 048
     Dates: start: 201907, end: 2019

REACTIONS (2)
  - Drug eruption [Recovered/Resolved]
  - Prostate cancer [Unknown]

NARRATIVE: CASE EVENT DATE: 2019
